FAERS Safety Report 14552312 (Version 9)
Quarter: 2022Q1

REPORT INFORMATION
  Report Type: Spontaneous
  Country: DE (occurrence: DE)
  Receive Date: 20180220
  Receipt Date: 20220331
  Transmission Date: 20220424
  Serious: Yes (Other)
  Sender: FDA-Public Use
  Company Number: DE-GILEAD-2018-0318702

PATIENT
  Age: 50 Year
  Sex: Male
  Weight: 74 kg

DRUGS (29)
  1. RIBAVIRIN [Suspect]
     Active Substance: RIBAVIRIN
     Indication: Chronic hepatitis C
     Dosage: 1000 MILLIGRAM, ONCE A DAY
     Route: 048
     Dates: start: 20131118, end: 20140109
  2. RIBAVIRIN [Suspect]
     Active Substance: RIBAVIRIN
     Dosage: 400 MILLIGRAM, TWO TIMES A DAY
     Route: 048
     Dates: start: 10131118, end: 20140109
  3. TENOFOVIR DISOPROXIL [Suspect]
     Active Substance: TENOFOVIR DISOPROXIL
     Indication: HIV infection
     Dosage: 245 MILLIGRAM, ONCE A DAY
     Route: 065
     Dates: start: 20160613
  4. PEGASYS [Suspect]
     Active Substance: PEGINTERFERON ALFA-2A
     Indication: Chronic hepatitis C
     Dosage: 180 MICROGRAM, EVERY WEEK
     Route: 058
     Dates: start: 20131118, end: 20140109
  5. EMTRICITABINE\RILPIVIRINE\TENOFOVIR DISOPROXIL FUMARATE [Suspect]
     Active Substance: EMTRICITABINE\RILPIVIRINE\TENOFOVIR DISOPROXIL FUMARATE
     Indication: HIV infection
     Dosage: 1 DOSAGE FORM, DAILY
     Route: 065
     Dates: start: 20131118
  6. RILPIVIRINE [Suspect]
     Active Substance: RILPIVIRINE
     Indication: HIV infection
     Dosage: 25 MILLIGRAM, ONCE A DAY
     Route: 048
     Dates: start: 20160613
  7. EMTRICITABINE [Suspect]
     Active Substance: EMTRICITABINE
     Indication: HIV infection
     Dosage: 200 MILLIGRAM, ONCE A DAY
     Route: 065
     Dates: start: 20131118
  8. CEFTRIAXONE [Concomitant]
     Active Substance: CEFTRIAXONE
     Indication: Product used for unknown indication
     Dosage: UNK
     Route: 065
     Dates: start: 20150812
  9. AZITHROMYCIN [Concomitant]
     Active Substance: AZITHROMYCIN
     Indication: Product used for unknown indication
     Dosage: UNK
     Route: 065
  10. AZITHROMYCIN [Concomitant]
     Active Substance: AZITHROMYCIN
     Dosage: 500 MILLIGRAM, ONCE A DAY
     Route: 065
     Dates: start: 20150630, end: 20150715
  11. AZITHROMYCIN [Concomitant]
     Active Substance: AZITHROMYCIN
     Dosage: UNK
     Route: 065
     Dates: start: 20160613
  12. AFLURIA NOS [Concomitant]
     Active Substance: INFLUENZA VIRUS VACCINE TRIVALENT TYPE A+B AFLURIA
     Indication: Product used for unknown indication
     Dosage: 0.5 MILLILITER
     Route: 065
     Dates: start: 20171009, end: 20171009
  13. AFLURIA NOS [Concomitant]
     Active Substance: INFLUENZA VIRUS VACCINE TRIVALENT TYPE A+B AFLURIA
     Dosage: 0.5 MILLILITER
     Route: 065
  14. BETAISODONA [Concomitant]
     Active Substance: POVIDONE-IODINE
     Indication: Product used for unknown indication
     Dosage: 30 GRAM
     Route: 065
     Dates: start: 20150812
  15. BISOPROLOL [Concomitant]
     Active Substance: BISOPROLOL
     Indication: Product used for unknown indication
     Dosage: UNK
     Route: 065
  16. BISOPROLOL [Concomitant]
     Active Substance: BISOPROLOL
     Dosage: UNK
     Route: 065
     Dates: start: 20061101
  17. CEFUROXIME [Concomitant]
     Active Substance: CEFUROXIME
     Indication: Product used for unknown indication
     Dosage: UNK
     Route: 065
     Dates: start: 20170313
  18. CEPHALEXIN [Concomitant]
     Active Substance: CEPHALEXIN
     Indication: Product used for unknown indication
     Dosage: 1000 MILLIGRAM, ONCE A DAY (1000 MG, TID)
     Route: 065
     Dates: start: 20150812
  19. CLIOQUINOL [Concomitant]
     Active Substance: CLIOQUINOL
     Indication: Product used for unknown indication
     Dosage: UNK UNK, AS NECESSARY
     Route: 065
     Dates: start: 20160613
  20. BETAMETHASONE VALERATE\FUSIDIC ACID [Concomitant]
     Active Substance: BETAMETHASONE VALERATE\FUSIDIC ACID
     Indication: Product used for unknown indication
     Dosage: UNK, AS NECESSARY
     Route: 065
     Dates: start: 20140723
  21. IBUPROFEN [Concomitant]
     Active Substance: IBUPROFEN
     Indication: Product used for unknown indication
     Dosage: 3 DOSAGE FORM, ONCE A DAY
     Route: 065
     Dates: start: 20160613
  22. Indomet [Concomitant]
     Indication: Product used for unknown indication
     Dosage: 50 MILLIGRAM, ONCE A DAY
     Route: 065
     Dates: start: 20140820
  23. TRAMADOL [Concomitant]
     Active Substance: TRAMADOL
     Indication: Product used for unknown indication
     Dosage: UNK, AS NECESSARY
     Route: 065
     Dates: start: 20160613
  24. ROCEPHIN [Concomitant]
     Active Substance: CEFTRIAXONE SODIUM
     Indication: Product used for unknown indication
     Dosage: UNK
     Route: 065
     Dates: start: 20170313
  25. ROCEPHIN [Concomitant]
     Active Substance: CEFTRIAXONE SODIUM
     Dosage: UNK
     Route: 065
     Dates: start: 20170313
  26. VALTREX [Concomitant]
     Active Substance: VALACYCLOVIR HYDROCHLORIDE
     Indication: Product used for unknown indication
     Dosage: 2 DOSAGE FORM
     Route: 065
     Dates: start: 20160613
  27. VAXIGRIP [Concomitant]
     Active Substance: INFLUENZA VIRUS VACCINE
     Indication: Product used for unknown indication
     Dosage: UNK
     Route: 065
     Dates: start: 20151021, end: 20211021
  28. VAXIGRIP [Concomitant]
     Active Substance: INFLUENZA VIRUS VACCINE
     Dosage: UNK
     Route: 065
     Dates: start: 20151021, end: 20151021
  29. VIOFORMO [Concomitant]
     Indication: Product used for unknown indication
     Dosage: AS NECESSARY
     Route: 065
     Dates: start: 20160613

REACTIONS (7)
  - Facial paresis [Recovered/Resolved]
  - Skin lesion [Recovered/Resolved]
  - Venous thrombosis [Recovered/Resolved]
  - Haemorrhoids thrombosed [Recovered/Resolved]
  - Pyrexia [Recovered/Resolved]
  - Fatigue [Unknown]
  - Acne [Unknown]

NARRATIVE: CASE EVENT DATE: 20131118
